FAERS Safety Report 7464016-3 (Version None)
Quarter: 2011Q2

REPORT INFORMATION
  Report Type: 
  Country: None (occurrence: None)
  Receive Date: 20110506
  Receipt Date: 20110421
  Transmission Date: 20111010
  Serious: No
  Sender: FDA-Public Use
  Company Number: US-B.I. PHARMACEUTICALS,INC./RIDGEFIELD-2011-BP-02891BP

PATIENT
  Age: 80 Year
  Sex: Female

DRUGS (8)
  1. ACETAMINOPHEN [Concomitant]
  2. PRADAXA [Suspect]
     Indication: ATRIAL FIBRILLATION
     Dosage: 300 MG
     Route: 048
     Dates: start: 20110125
  3. NORCO [Concomitant]
     Indication: BACK PAIN
     Route: 048
     Dates: start: 20101201
  4. LOSARTAN [Concomitant]
     Dosage: 50 MG
  5. DYAZIDE [Concomitant]
  6. SOTALOL HCL [Concomitant]
     Dosage: 160 MG
  7. WARFARIN [Concomitant]
     Dosage: 2.5 MG
  8. PAIN MEDS [Concomitant]

REACTIONS (2)
  - NAUSEA [None]
  - FLUSHING [None]
